FAERS Safety Report 14609708 (Version 1)
Quarter: 2018Q1

REPORT INFORMATION
  Report Type: Spontaneous
  Country: US (occurrence: US)
  Receive Date: 20180307
  Receipt Date: 20180307
  Transmission Date: 20180509
  Serious: No
  Sender: FDA-Public Use
  Company Number: US-GALDERMA-US17009370

PATIENT
  Sex: Female

DRUGS (1)
  1. TRI-LUMA [Suspect]
     Active Substance: FLUOCINOLONE ACETONIDE\HYDROQUINONE\TRETINOIN
     Indication: SOLAR LENTIGO
     Route: 061
     Dates: start: 201709, end: 201710

REACTIONS (4)
  - Intentional product use issue [Recovered/Resolved]
  - Product storage error [Recovered/Resolved]
  - Drug ineffective for unapproved indication [Unknown]
  - Product physical consistency issue [Recovered/Resolved]
